FAERS Safety Report 8374959-4 (Version None)
Quarter: 2012Q2

REPORT INFORMATION
  Report Type: 
  Country: None (occurrence: None)
  Receive Date: 20120521
  Receipt Date: 20120427
  Transmission Date: 20120825
  Serious: No
  Sender: FDA-Public Use
  Company Number: IT-ASTRAZENECA-2012SE27750

PATIENT
  Age: 96 Day
  Sex: Female

DRUGS (2)
  1. TOPAMAX [Concomitant]
     Indication: EPILEPSY
     Dates: start: 20120416, end: 20120418
  2. PROPOFOL [Suspect]
     Indication: SEDATION
     Route: 042
     Dates: start: 20120418, end: 20120418

REACTIONS (1)
  - ERYTHEMA [None]
